FAERS Safety Report 17564187 (Version 3)
Quarter: 2020Q1

REPORT INFORMATION
  Report Type: Spontaneous
  Country: CN (occurrence: CN)
  Receive Date: 20200320
  Receipt Date: 20200331
  Transmission Date: 20200409
  Serious: Yes (Hospitalization)
  Sender: FDA-Public Use
  Company Number: CN-BEH-2020114532

PATIENT
  Age: 68 Year
  Sex: Male

DRUGS (3)
  1. ALBURX [Suspect]
     Active Substance: ALBUMIN HUMAN
     Dosage: 10 GRAM, QD
     Route: 041
     Dates: start: 20200311, end: 20200311
  2. FAT [Concomitant]
  3. ALBURX [Suspect]
     Active Substance: ALBUMIN HUMAN
     Indication: HYPOPROTEINAEMIA
     Dosage: 20 GRAM, QD
     Route: 041
     Dates: start: 20200310, end: 20200310

REACTIONS (3)
  - Liquid product physical issue [Unknown]
  - No adverse event [Unknown]
  - Dyspnoea [Recovered/Resolved]

NARRATIVE: CASE EVENT DATE: 20200311
